FAERS Safety Report 9163579 (Version 1)
Quarter: 2013Q1

REPORT INFORMATION
  Report Type: Spontaneous
  Country: US (occurrence: US)
  Receive Date: 20130314
  Receipt Date: 20130314
  Transmission Date: 20140127
  Serious: Yes (Hospitalization, Other)
  Sender: FDA-Public Use
  Company Number: US-PFIZER INC-2013083409

PATIENT
  Age: 71 Year
  Sex: Female

DRUGS (3)
  1. DILANTIN-125 [Suspect]
     Indication: CONVULSION
     Dosage: UNK
     Route: 048
     Dates: start: 20091105
  2. DILANTIN-125 [Suspect]
     Dosage: 100MG ORALLY TWICE DAILY AND 200MG ORALLY AT BED TIME EVERY DAY
     Route: 048
     Dates: start: 20091117, end: 20091128
  3. DILANTIN-125 [Suspect]
     Dosage: 100MG ORALLY ONCE DAILY AND 200MG ORALLY TWICE DAILY
     Route: 048
     Dates: start: 20091202, end: 20091210

REACTIONS (1)
  - Stevens-Johnson syndrome [Recovering/Resolving]
